FAERS Safety Report 22731951 (Version 2)
Quarter: 2024Q2

REPORT INFORMATION
  Report Type: Spontaneous
  Country: JP (occurrence: JP)
  Receive Date: 20230720
  Receipt Date: 20240424
  Transmission Date: 20240715
  Serious: Yes (Life-Threatening)
  Sender: FDA-Public Use
  Company Number: JP-BAUSCH-BL-2023-010815

PATIENT
  Age: 71 Year
  Sex: Female

DRUGS (8)
  1. HYDROCORTISONE [Suspect]
     Active Substance: HYDROCORTISONE
     Indication: COVID-19 pneumonia
     Dosage: 200MG/DOSE
     Route: 042
  2. NOREPINEPHRINE [Suspect]
     Active Substance: NOREPINEPHRINE\NOREPINEPHRINE BITARTRATE
     Indication: Blood pressure measurement
     Dosage: 1 G/ML, 5 TIMES A DAY
     Route: 042
  3. OXYGEN [Suspect]
     Active Substance: OXYGEN
     Indication: Oxygen therapy
     Route: 007
  4. REMDESIVIR [Suspect]
     Active Substance: REMDESIVIR
     Indication: Antiviral treatment
     Dosage: 100 MG INTRAVENOUS ONCE A DAY
     Route: 042
  5. FAVIPIRAVIR [Suspect]
     Active Substance: FAVIPIRAVIR
     Indication: Antiviral treatment
     Dosage: 200 MG ORALLY TWICE PER DAY
     Route: 048
  6. THROMBOMODULIN ALFA [Suspect]
     Active Substance: THROMBOMODULIN ALFA
     Indication: Disseminated intravascular coagulation
     Dosage: 12,800 U ONCE PER DAY FOR 3 DAYS (ART-123)
     Route: 042
  7. CEFAZOLIN [Concomitant]
     Active Substance: CEFAZOLIN
     Indication: Cellulitis
     Dosage: 1G/DAY
     Route: 065
  8. VANCOMYCIN [Concomitant]
     Active Substance: VANCOMYCIN
     Indication: Wound infection staphylococcal
     Dosage: TROUGH VALUE, 15-20 UG/ML
     Route: 065

REACTIONS (2)
  - Wound infection staphylococcal [Recovering/Resolving]
  - Infection [Recovering/Resolving]
